FAERS Safety Report 17644957 (Version 1)
Quarter: 2020Q2

REPORT INFORMATION
  Report Type: Spontaneous
  Country: US (occurrence: US)
  Receive Date: 20200408
  Receipt Date: 20200408
  Transmission Date: 20200713
  Serious: No
  Sender: FDA-Public Use
  Company Number: None

PATIENT
  Age: 58 Year
  Sex: Male
  Weight: 57.15 kg

DRUGS (22)
  1. ALPRAZOLAM. [Concomitant]
     Active Substance: ALPRAZOLAM
  2. WELLBUTRIN [Concomitant]
     Active Substance: BUPROPION HYDROCHLORIDE
  3. CLONIDINE. [Concomitant]
     Active Substance: CLONIDINE
  4. LACTULOSE. [Concomitant]
     Active Substance: LACTULOSE
  5. MYRBETRIQ [Concomitant]
     Active Substance: MIRABEGRON
  6. VITAMIN D [Concomitant]
     Active Substance: VITAMIN D NOS
  7. BYDUREON [Concomitant]
     Active Substance: EXENATIDE
  8. ABIRATERONE. [Suspect]
     Active Substance: ABIRATERONE ACETATE
     Indication: PROSTATE CANCER
     Route: 048
     Dates: start: 20200318
  9. LYRICA [Concomitant]
     Active Substance: PREGABALIN
  10. CLOPIDOGREL [Concomitant]
     Active Substance: CLOPIDOGREL BISULFATE
  11. LUPRON [Concomitant]
     Active Substance: LEUPROLIDE ACETATE
  12. COMPAZINE [Concomitant]
     Active Substance: PROCHLORPERAZINE MALEATE
  13. LISINOPRIL. [Concomitant]
     Active Substance: LISINOPRIL
  14. LOPERAMIDE [Concomitant]
     Active Substance: LOPERAMIDE
  15. ZOLOFT [Concomitant]
     Active Substance: SERTRALINE HYDROCHLORIDE
  16. ALFUZOSIN [Concomitant]
     Active Substance: ALFUZOSIN
  17. BICALUTAMIDE. [Concomitant]
     Active Substance: BICALUTAMIDE
  18. TOLTERODINE [Concomitant]
     Active Substance: TOLTERODINE
  19. NORCO [Concomitant]
     Active Substance: ACETAMINOPHEN\HYDROCODONE BITARTRATE
  20. METFORMIN [Concomitant]
     Active Substance: METFORMIN HYDROCHLORIDE
  21. ZOFRAN [Concomitant]
     Active Substance: ONDANSETRON HYDROCHLORIDE
  22. ZOCOR [Concomitant]
     Active Substance: SIMVASTATIN

REACTIONS (2)
  - Diarrhoea [None]
  - Fatigue [None]

NARRATIVE: CASE EVENT DATE: 20200408
